FAERS Safety Report 4798066-2 (Version None)
Quarter: 2005Q4

REPORT INFORMATION
  Report Type: 
  Country: None (occurrence: None)
  Receive Date: 20051006
  Receipt Date: 20051006
  Transmission Date: 20060501
  Serious: Yes (Hospitalization)
  Sender: FDA-Public Use
  Company Number: None

PATIENT
  Age: 50 Year
  Sex: Female

DRUGS (6)
  1. OXYCODONE [Suspect]
     Indication: PAIN
     Dates: start: 20050214
  2. SEROQUEL [Suspect]
     Indication: DEPRESSION
  3. LEXAPRO [Suspect]
  4. ATIVAN [Suspect]
  5. TOPAMAX [Suspect]
  6. TYLENOL (CAPLET) [Suspect]

REACTIONS (4)
  - FALL [None]
  - INTENTIONAL DRUG MISUSE [None]
  - MULTIPLE DRUG OVERDOSE [None]
  - SELF INJURIOUS BEHAVIOUR [None]
